FAERS Safety Report 5387599-6 (Version None)
Quarter: 2007Q3

REPORT INFORMATION
  Report Type: 
  Country: None (occurrence: None)
  Receive Date: 20070711
  Receipt Date: 20070629
  Transmission Date: 20080115
  Serious: Yes (Life-Threatening, Hospitalization)
  Sender: FDA-Public Use
  Company Number: GXKR2007PL05617

PATIENT
  Age: 12 Year
  Sex: Female

DRUGS (1)
  1. ASPIRIN [Suspect]
     Dosage: IRD

REACTIONS (1)
  - OESOPHAGEAL VARICES HAEMORRHAGE [None]
